FAERS Safety Report 8242193-4 (Version None)
Quarter: 2012Q1

REPORT INFORMATION
  Report Type: 
  Country: None (occurrence: None)
  Receive Date: 20120329
  Receipt Date: 20120315
  Transmission Date: 20120608
  Serious: Yes (Hospitalization, Other)
  Sender: FDA-Public Use
  Company Number: GB-RANBAXY-2007RR-08680

PATIENT

DRUGS (8)
  1. AMOXICILLIN [Suspect]
     Route: 064
  2. AMINOPHYLLINE [Suspect]
     Route: 064
  3. HYDROCORTISONE [Suspect]
     Route: 064
  4. CLARITHROMYCIN [Suspect]
     Route: 064
  5. ATROVENT [Suspect]
     Route: 064
  6. ALBUTEROL [Suspect]
     Dosage: 5 MG, UNK
     Route: 064
  7. ALBUTEROL [Suspect]
     Dosage: UNK
     Route: 064
  8. MAGNESIUM SULFATE [Suspect]
     Route: 064

REACTIONS (4)
  - FOETAL DISTRESS SYNDROME [None]
  - CAESAREAN SECTION [None]
  - TACHYCARDIA FOETAL [None]
  - FOETAL EXPOSURE DURING PREGNANCY [None]
